FAERS Safety Report 7715961-2 (Version None)
Quarter: 2011Q3

REPORT INFORMATION
  Report Type: 
  Country: None (occurrence: None)
  Receive Date: 20110829
  Receipt Date: 20110816
  Transmission Date: 20111222
  Serious: Yes (Death, Hospitalization, Other)
  Sender: FDA-Public Use
  Company Number: MX-ELI_LILLY_AND_COMPANY-MX201108004930

PATIENT
  Age: 77 Year
  Sex: Female

DRUGS (3)
  1. GLUCOSAMINE [Concomitant]
  2. FORTEO [Suspect]
     Indication: OSTEOPOROSIS
     Dosage: 20 UG, QD
     Route: 058
     Dates: start: 20100101, end: 20110101
  3. CALCIUM CARBONATE [Concomitant]

REACTIONS (2)
  - HEADACHE [None]
  - ANEURYSM [None]
